FAERS Safety Report 16170233 (Version 3)
Quarter: 2019Q2

REPORT INFORMATION
  Report Type: Spontaneous
  Country: US (occurrence: US)
  Receive Date: 20190408
  Receipt Date: 20190429
  Transmission Date: 20190711
  Serious: No
  Sender: FDA-Public Use
  Company Number: US-MTPC-MTDA2019-0042261

PATIENT

DRUGS (2)
  1. RADICAVA [Suspect]
     Active Substance: EDARAVONE
     Indication: AMYOTROPHIC LATERAL SCLEROSIS
     Dosage: 60 MILLIGRAM, QD FOR 14 DAYS WITH 14 DAYS OFF
     Route: 042
     Dates: start: 201811
  2. BACLOFEN. [Concomitant]
     Active Substance: BACLOFEN
     Indication: MUSCLE RELAXANT THERAPY
     Route: 065

REACTIONS (6)
  - Muscle spasms [Unknown]
  - Dysphonia [Unknown]
  - Back pain [Unknown]
  - Urine odour abnormal [Unknown]
  - Fatigue [Unknown]
  - Feeling abnormal [Unknown]
